FAERS Safety Report 8789053 (Version 3)
Quarter: 2013Q1

REPORT INFORMATION
  Report Type: Spontaneous
  Country: US (occurrence: US)
  Receive Date: 20120917
  Receipt Date: 20130117
  Transmission Date: 20140127
  Serious: No
  Sender: FDA-Public Use
  Company Number: US-009507513-1209USA005788

PATIENT
  Age: 41 None
  Sex: Male
  Weight: 99.77 kg

DRUGS (3)
  1. VICTRELIS [Suspect]
     Indication: HEPATITIS C
     Dosage: UNK
     Route: 048
     Dates: start: 20120813, end: 20121210
  2. RIBAVIRIN [Suspect]
     Indication: HEPATITIS C
     Dosage: UNK
     Route: 048
     Dates: start: 20120716, end: 20121210
  3. PEGASYS [Suspect]
     Indication: HEPATITIS C
     Dosage: UNK
     Dates: start: 20120716, end: 20121210

REACTIONS (13)
  - Musculoskeletal stiffness [Unknown]
  - Dysgeusia [Unknown]
  - Bronchitis [Unknown]
  - Sinusitis [Unknown]
  - Pyrexia [Recovering/Resolving]
  - Drug dose omission [Unknown]
  - Somnolence [Unknown]
  - Decreased appetite [Unknown]
  - Nausea [Recovered/Resolved]
  - Influenza like illness [Recovering/Resolving]
  - Tooth fracture [Unknown]
  - Weight decreased [Recovering/Resolving]
  - Therapeutic response decreased [Unknown]
